FAERS Safety Report 7621164-2 (Version None)
Quarter: 2011Q3

REPORT INFORMATION
  Report Type: 
  Country: None (occurrence: None)
  Receive Date: 20110719
  Receipt Date: 20110714
  Transmission Date: 20111222
  Serious: Yes (Life-Threatening, Hospitalization)
  Sender: FDA-Public Use
  Company Number: AU-CELGENEUS-008-C5013-11060261

PATIENT
  Sex: Male
  Weight: 73.5 kg

DRUGS (16)
  1. ANTITHROMBOTIC AGENTS [Concomitant]
     Indication: THROMBOSIS PROPHYLAXIS
     Route: 065
  2. DEXAMETHASONE [Concomitant]
     Indication: PREMEDICATION
     Dosage: 8 MILLIGRAM
     Route: 051
     Dates: start: 20110223, end: 20110527
  3. METFORMIN HCL [Concomitant]
     Indication: DIABETES MELLITUS
     Dosage: 2 GRAM
     Route: 048
     Dates: start: 20050101
  4. DEXAMETHASONE [Concomitant]
     Dosage: 4, 4, 2, 2 MG
     Route: 051
     Dates: start: 20110224, end: 20110601
  5. ACETAMINOPHEN [Concomitant]
     Indication: BONE PAIN
     Route: 048
     Dates: start: 20110223, end: 20110531
  6. PREDNISONE [Suspect]
     Indication: PROSTATE CANCER
     Dosage: 10 MILLIGRAM
     Route: 048
     Dates: start: 20110223, end: 20110315
  7. COLOXYL WITH SENNA [Concomitant]
     Dosage: 2 TABLET
     Route: 048
     Dates: start: 20110604, end: 20110604
  8. PREDNISONE [Suspect]
     Dosage: 10 MILLIGRAM
     Route: 065
     Dates: start: 20110527, end: 20110627
  9. ONDANSETRON [Concomitant]
     Indication: PREMEDICATION
     Dosage: 16 MILLIGRAM
     Route: 060
     Dates: start: 20110223, end: 20110527
  10. DOCETAXEL [Suspect]
     Dosage: 48 MILLIGRAM
     Route: 051
     Dates: start: 20110527, end: 20110627
  11. COLOXYL WITH SENNA [Concomitant]
     Indication: CONSTIPATION
     Dosage: 2 TABLET
     Route: 048
     Dates: start: 20110323, end: 20110531
  12. LENALIDOMIDE [Suspect]
     Indication: PROSTATE CANCER
     Dosage: 25 MILLIGRAM
     Route: 048
     Dates: start: 20110223, end: 20110308
  13. LENALIDOMIDE [Suspect]
     Dosage: 25 MILLIGRAM
     Route: 048
     Dates: start: 20110527, end: 20110627
  14. DOCETAXEL [Suspect]
     Indication: PROSTATE CANCER
     Dosage: 60 MILLIGRAM
     Route: 051
     Dates: start: 20110223, end: 20110223
  15. AMLODIPINE [Concomitant]
     Indication: HYPERTENSION
     Dosage: 5 MILLIGRAM
     Route: 048
     Dates: start: 20060101
  16. ONDANSETRON [Concomitant]
     Route: 051
     Dates: start: 20110606, end: 20110613

REACTIONS (2)
  - NEUTROPENIA [None]
  - NECROTISING FASCIITIS [None]
